FAERS Safety Report 5708252-2 (Version None)
Quarter: 2008Q2

REPORT INFORMATION
  Report Type: 
  Country: None (occurrence: None)
  Receive Date: 20080417
  Receipt Date: 20080408
  Transmission Date: 20081010
  Serious: Yes (Hospitalization)
  Sender: FDA-Public Use
  Company Number: NL-TEVA-169422ISR

PATIENT
  Sex: Male

DRUGS (5)
  1. GLIMEPIRIDE [Suspect]
     Route: 048
     Dates: start: 20080101
  2. GLIMEPIRIDE [Suspect]
     Route: 048
     Dates: start: 20080101
  3. METFORMIN HCL [Concomitant]
  4. QUINAPRIL HCL [Concomitant]
  5. LEVOTHYROXINE SODIUM [Concomitant]

REACTIONS (1)
  - ANAPHYLACTIC REACTION [None]
